FAERS Safety Report 14215798 (Version 2)
Quarter: 2017Q4

REPORT INFORMATION
  Report Type: Spontaneous
  Country: JP (occurrence: JP)
  Receive Date: 20171122
  Receipt Date: 20171228
  Transmission Date: 20180321
  Serious: Yes (Hospitalization)
  Sender: FDA-Public Use
  Company Number: PHHY2017JP170871

PATIENT
  Age: 71 Year
  Sex: Female
  Weight: 40.4 kg

DRUGS (2)
  1. METHOTREXATE. [Suspect]
     Active Substance: METHOTREXATE
     Indication: RHEUMATOID ARTHRITIS
     Dosage: UNK
     Route: 065
     Dates: start: 2010, end: 201411
  2. PREDNISOLONE. [Concomitant]
     Active Substance: PREDNISOLONE
     Indication: RHEUMATOID ARTHRITIS
     Dosage: UNK
     Route: 065
     Dates: start: 2010

REACTIONS (7)
  - Metastases to lung [Unknown]
  - Metastases to adrenals [Unknown]
  - Haematuria [Unknown]
  - Cystitis [Unknown]
  - Diffuse large B-cell lymphoma [Recovered/Resolved]
  - Lymphadenopathy [Unknown]
  - Bladder cancer [Recovered/Resolved]
